FAERS Safety Report 4875504-8 (Version None)
Quarter: 2006Q1

REPORT INFORMATION
  Report Type: 
  Country: None (occurrence: None)
  Receive Date: 20060109
  Receipt Date: 20051230
  Transmission Date: 20060701
  Serious: Yes (Other)
  Sender: FDA-Public Use
  Company Number: PHEH2005US13992

PATIENT
  Sex: Female

DRUGS (1)
  1. CLOZAPINE [Suspect]
     Dosage: UNK, ONCE/SINGLE
     Route: 048
     Dates: start: 20051229, end: 20051229

REACTIONS (2)
  - MEDICATION ERROR [None]
  - UNRESPONSIVE TO VERBAL STIMULI [None]
